FAERS Safety Report 6109517-5 (Version None)
Quarter: 2009Q1

REPORT INFORMATION
  Report Type: 
  Country: None (occurrence: None)
  Receive Date: 20090310
  Receipt Date: 20090304
  Transmission Date: 20090719
  Serious: Yes (Other)
  Sender: FDA-Public Use
  Company Number: US-ELI_LILLY_AND_COMPANY-US200903001204

PATIENT
  Sex: Male

DRUGS (7)
  1. HUMALOG [Suspect]
     Dates: start: 19990101
  2. LANTUS [Concomitant]
  3. LISINOPRIL [Concomitant]
  4. LISINOPRIL AND HYDROCHLOROTHIAZIDE [Concomitant]
  5. COREG [Concomitant]
  6. FOLIC ACID [Concomitant]
  7. AMITRIPTYLINE [Concomitant]

REACTIONS (10)
  - BLINDNESS UNILATERAL [None]
  - CYANOSIS [None]
  - DIABETIC NEUROPATHY [None]
  - DYSPNOEA [None]
  - FALL [None]
  - GANGRENE [None]
  - JOINT INJURY [None]
  - LOCALISED INFECTION [None]
  - MYOCARDIAL INFARCTION [None]
  - RETINOPATHY [None]
